FAERS Safety Report 5154898-2 (Version None)
Quarter: 2006Q4

REPORT INFORMATION
  Report Type: 
  Country: None (occurrence: None)
  Receive Date: 20061120
  Receipt Date: 20061120
  Transmission Date: 20070319
  Serious: Yes (Other)
  Sender: FDA-Public Use
  Company Number: None

PATIENT
  Age: 72 Year
  Sex: Female
  Weight: 51.7101 kg

DRUGS (1)
  1. MIACALCIN [Suspect]
     Indication: OSTEOPOROTIC FRACTURE
     Dosage: 30 DOSE  ONCE A DAY  NASAL
     Route: 045
     Dates: start: 20060615, end: 20060620

REACTIONS (10)
  - ARTHRALGIA [None]
  - EPISTAXIS [None]
  - FATIGUE [None]
  - HEADACHE [None]
  - LACRIMATION INCREASED [None]
  - MYALGIA [None]
  - NASAL CONGESTION [None]
  - OCULAR HYPERAEMIA [None]
  - VISION BLURRED [None]
  - VISUAL DISTURBANCE [None]
